FAERS Safety Report 8154450-0 (Version None)
Quarter: 2012Q1

REPORT INFORMATION
  Report Type: 
  Country: None (occurrence: None)
  Receive Date: 20120207
  Receipt Date: 20120125
  Transmission Date: 20120608
  Serious: Yes (Hospitalization)
  Sender: FDA-Public Use
  Company Number: 20090805CINRY1067

PATIENT
  Age: 32 Year
  Sex: Female

DRUGS (8)
  1. FLUOXETINE [Concomitant]
  2. CINRYZE [Suspect]
     Indication: HEREDITARY ANGIOEDEMA
     Dosage: 1000 UNIT, 3 IN 1 WK, INTRAVENOUS
     Route: 042
     Dates: start: 20090122
  3. CINRYZE [Suspect]
     Indication: PROPHYLAXIS
     Dosage: 1000 UNIT, 3 IN 1 WK, INTRAVENOUS
     Route: 042
     Dates: start: 20090122
  4. CLONAZEPAM [Concomitant]
  5. PHENERGAN [Concomitant]
  6. OXYCODONE SUSTAINED RELEASE (OXYCODONE HYDROCHLORIDE) [Concomitant]
  7. YASMIN [Concomitant]
  8. PERCOCET [Concomitant]

REACTIONS (5)
  - DEEP VEIN THROMBOSIS [None]
  - SUBCLAVIAN VEIN THROMBOSIS [None]
  - HAEMATOCRIT DECREASED [None]
  - PRURITUS [None]
  - MEDICAL DEVICE COMPLICATION [None]
